FAERS Safety Report 4469746-3 (Version None)
Quarter: 2004Q4

REPORT INFORMATION
  Report Type: 
  Country: None (occurrence: None)
  Receive Date: 20041005
  Receipt Date: 20040924
  Transmission Date: 20050328
  Serious: No
  Sender: FDA-Public Use
  Company Number: 2004UW20299

PATIENT
  Age: 73 Year
  Sex: Male

DRUGS (15)
  1. ATACAND [Suspect]
     Dosage: 8 MG DAILY PO
     Route: 048
  2. FUROSEMIDE [Concomitant]
  3. GLYBURIDE [Concomitant]
  4. CLARITHROMYCIN [Concomitant]
  5. ACETAMINOPHEN [Concomitant]
  6. ALLOPURINOL [Concomitant]
  7. IPRATROPIUM BROMIDE [Concomitant]
  8. LORAZEPAM [Concomitant]
  9. MONTELUKAST [Concomitant]
  10. NIACIN [Concomitant]
  11. NITROGLYCERIDE [Concomitant]
  12. SALBUTAMOL [Concomitant]
  13. SPIRONOLACTONE [Concomitant]
  14. VITAMIN B COMPLEX CAP [Concomitant]
  15. WARFARIN SODIUM [Concomitant]

REACTIONS (5)
  - BLOOD CREATININE INCREASED [None]
  - BRONCHITIS [None]
  - LEUKOCYTOSIS [None]
  - PULMONARY OEDEMA [None]
  - RESPIRATORY DISORDER [None]
